FAERS Safety Report 6241621-3 (Version None)
Quarter: 2009Q2

REPORT INFORMATION
  Report Type: 
  Country: None (occurrence: None)
  Receive Date: 20090623
  Receipt Date: 20031203
  Transmission Date: 20091009
  Serious: Yes (Hospitalization)
  Sender: FDA-Public Use
  Company Number: AT-ROCHE-628927

PATIENT
  Sex: Female

DRUGS (44)
  1. DACLIZUMAB [Suspect]
     Route: 042
     Dates: start: 20030924
  2. DACLIZUMAB [Suspect]
     Route: 042
     Dates: start: 20031008
  3. MYCOPHENOLATE MOFETIL [Suspect]
     Dosage: DRUG: MYCOPHENOLATMOFETIL
     Route: 048
     Dates: start: 20030924, end: 20030924
  4. MYCOPHENOLATE MOFETIL [Suspect]
     Route: 048
     Dates: start: 20030925, end: 20030928
  5. MYCOPHENOLATE MOFETIL [Suspect]
     Route: 048
     Dates: start: 20030929, end: 20030929
  6. MYCOPHENOLATE MOFETIL [Suspect]
     Route: 048
     Dates: start: 20030930, end: 20031001
  7. MYCOPHENOLATE MOFETIL [Suspect]
     Route: 048
     Dates: start: 20031002, end: 20031005
  8. MYCOPHENOLATE MOFETIL [Suspect]
     Route: 048
     Dates: start: 20031006, end: 20031014
  9. MYCOPHENOLATE MOFETIL [Suspect]
     Route: 048
     Dates: start: 20031015, end: 20031204
  10. MYCOPHENOLATE MOFETIL [Suspect]
     Route: 048
     Dates: start: 20031205, end: 20031211
  11. MYCOPHENOLATE MOFETIL [Suspect]
     Route: 048
     Dates: start: 20031212, end: 20040104
  12. MYCOPHENOLATE MOFETIL [Suspect]
     Route: 048
     Dates: start: 20040105, end: 20040118
  13. MYCOPHENOLATE MOFETIL [Suspect]
     Route: 048
     Dates: start: 20040119, end: 20040123
  14. SIROLIMUS [Suspect]
     Route: 048
     Dates: start: 20030924, end: 20030930
  15. SIROLIMUS [Suspect]
     Route: 048
     Dates: start: 20031001, end: 20031218
  16. SIROLIMUS [Suspect]
     Route: 048
     Dates: start: 20031219, end: 20031228
  17. SIROLIMUS [Suspect]
     Route: 048
     Dates: start: 20031229, end: 20050404
  18. SIROLIMUS [Suspect]
     Route: 048
     Dates: start: 20050623, end: 20051003
  19. PREDNISOLONE [Suspect]
     Route: 048
     Dates: start: 20030926
  20. AMLODIPINE [Concomitant]
     Route: 048
     Dates: start: 20030925, end: 20031205
  21. AMLODIPINE [Concomitant]
     Route: 048
     Dates: start: 20040105, end: 20040803
  22. AMLODIPINE [Concomitant]
     Route: 048
     Dates: start: 20040804, end: 20041111
  23. AMLODIPINE [Concomitant]
     Route: 048
     Dates: start: 20041112, end: 20060606
  24. CARVEDILOL [Concomitant]
     Route: 048
     Dates: start: 20030925, end: 20040104
  25. CARVEDILOL [Concomitant]
     Route: 048
     Dates: start: 20040105, end: 20051002
  26. CARVEDILOL [Concomitant]
     Route: 048
     Dates: start: 20051003
  27. THYREX [Concomitant]
     Route: 048
     Dates: start: 20031101
  28. PANTOPRAZOLE SODIUM [Concomitant]
     Dates: start: 20031001
  29. SIMVASTATIN [Concomitant]
     Route: 048
     Dates: start: 20031117, end: 20040804
  30. COTRIM [Concomitant]
     Route: 048
     Dates: start: 20030926, end: 20040407
  31. METHYLPREDNISOLONE [Suspect]
     Route: 042
     Dates: start: 20030924
  32. METHYLPREDNISOLONE [Suspect]
     Route: 042
     Dates: start: 20030925
  33. TACROLIMUS [Suspect]
     Route: 048
     Dates: start: 20050404, end: 20050623
  34. TACROLIMUS [Suspect]
     Route: 048
     Dates: start: 20051003
  35. FLOXACILLIN SODIUM [Concomitant]
     Route: 048
     Dates: start: 20030924
  36. FLUVASTATIN [Concomitant]
     Route: 048
     Dates: start: 20040804, end: 20040901
  37. FLUVASTATIN [Concomitant]
     Route: 048
     Dates: start: 20050623
  38. GANCICLOVIR [Concomitant]
     Route: 042
     Dates: start: 20031212, end: 20031217
  39. METOPROLOL SUCCINATE [Concomitant]
     Route: 042
     Dates: start: 20030925
  40. MOXONIDINE [Concomitant]
     Route: 048
     Dates: start: 20031001
  41. NITRENDIPIN [Concomitant]
     Route: 048
     Dates: start: 20030930
  42. PENICILLIN [Concomitant]
     Route: 042
     Dates: start: 20030924
  43. VALGANCICLOVIR HCL [Concomitant]
     Route: 048
     Dates: start: 20031219, end: 20040201
  44. VALGANCICLOVIR HCL [Concomitant]
     Route: 048
     Dates: start: 20040202, end: 20040407

REACTIONS (5)
  - ANAEMIA [None]
  - BLOOD CREATININE INCREASED [None]
  - CYTOMEGALOVIRUS INFECTION [None]
  - HYPOKALAEMIA [None]
  - HYPONATRAEMIA [None]
